FAERS Safety Report 7911351-8 (Version None)
Quarter: 2011Q4

REPORT INFORMATION
  Report Type: 
  Country: None (occurrence: None)
  Receive Date: 20111114
  Receipt Date: 20110914
  Transmission Date: 20120403
  Serious: Yes (Hospitalization, Other)
  Sender: FDA-Public Use
  Company Number: FR-UCBSA-031298

PATIENT
  Age: 44 Year
  Sex: Male

DRUGS (15)
  1. ALLOPURINOL [Concomitant]
     Dosage: 100 MG,2 UNITS TWICE DAILY
  2. COLCHICINE [Concomitant]
     Dosage: 1 UNIT DAILY
  3. LOVENOX [Suspect]
     Route: 058
     Dates: start: 20110310, end: 20110324
  4. CELECTOL [Concomitant]
  5. URBANYL [Concomitant]
     Dosage: 10 MG,1/2 UNIT DAILY
  6. DEPAKENE [Suspect]
     Dosage: DAILY DOSE: 3000 MG
     Route: 042
     Dates: start: 20110221, end: 20110327
  7. IRBESARTAN [Concomitant]
  8. VIMPAT [Suspect]
     Route: 042
     Dates: start: 20110317, end: 20110323
  9. VIMPAT [Suspect]
     Route: 042
     Dates: start: 20110324, end: 20110328
  10. DEPAKENE [Suspect]
     Dosage: DAILY DOSE: 800 MG
     Route: 042
     Dates: start: 20110207, end: 20110209
  11. NEXIUM [Concomitant]
  12. DEPAKENE [Suspect]
     Dosage: DAILY DOSE: 1600 MG
     Route: 042
     Dates: start: 20110210, end: 20110211
  13. DEPAKENE [Suspect]
     Dosage: DAILY DOSE: 1000 MG
     Route: 042
     Dates: start: 20110328, end: 20110411
  14. LOVENOX [Suspect]
     Route: 058
     Dates: start: 20110207, end: 20110221
  15. DEPAKENE [Suspect]
     Dosage: DAILY DOSE: 2000 MG
     Route: 042
     Dates: start: 20110212, end: 20110220

REACTIONS (1)
  - THROMBOCYTOPENIA [None]
